FAERS Safety Report 19912698 (Version 1)
Quarter: 2021Q4

REPORT INFORMATION
  Report Type: Spontaneous
  Country: KR (occurrence: KR)
  Receive Date: 20211004
  Receipt Date: 20211004
  Transmission Date: 20220303
  Serious: Yes (Other)
  Sender: FDA-Public Use
  Company Number: KR-VIIV HEALTHCARE ULC-KR2021APC203445

PATIENT
  Age: 47 Year
  Sex: Male
  Weight: 64.7 kg

DRUGS (4)
  1. KIVEXA [Suspect]
     Active Substance: ABACAVIR SULFATE\LAMIVUDINE
     Indication: HIV infection
     Dosage: 1 MG
     Route: 048
     Dates: start: 20130419
  2. AMOXICILLIN [Concomitant]
     Active Substance: AMOXICILLIN
     Indication: Cellulitis
     Dosage: UNK
     Route: 048
     Dates: start: 20131021, end: 20131031
  3. EFAVIRENZ [Concomitant]
     Active Substance: EFAVIRENZ
     Indication: HIV infection
     Dosage: UNK
     Route: 048
     Dates: start: 20111121
  4. INFLUENZA VIRUS VACCINE [Concomitant]
     Active Substance: INFLUENZA VIRUS VACCINE
     Indication: Prophylaxis
     Dosage: UNK
     Route: 030
     Dates: start: 20131017, end: 20131017

REACTIONS (3)
  - Cellulitis [Recovered/Resolved]
  - Lipid metabolism disorder [Not Recovered/Not Resolved]
  - Dyslipidaemia [Not Recovered/Not Resolved]

NARRATIVE: CASE EVENT DATE: 20131007
